FAERS Safety Report 8120399-2 (Version None)
Quarter: 2012Q1

REPORT INFORMATION
  Report Type: 
  Country: None (occurrence: None)
  Receive Date: 20120207
  Receipt Date: 20120201
  Transmission Date: 20120608
  Serious: Yes (Other)
  Sender: FDA-Public Use
  Company Number: JP-GLAXOSMITHKLINE-B0779407A

PATIENT
  Sex: Male

DRUGS (3)
  1. ZYPREXA [Concomitant]
     Indication: BIPOLAR DISORDER
     Dosage: 20MG PER DAY
     Route: 048
  2. LAMICTAL [Suspect]
     Indication: BIPOLAR DISORDER
     Dosage: 100MG PER DAY
     Route: 048
     Dates: start: 20110901, end: 20111003
  3. BLONANSERIN [Concomitant]
     Dosage: 24MG PER DAY
     Route: 048
     Dates: start: 20110906, end: 20111003

REACTIONS (1)
  - ECZEMA [None]
